FAERS Safety Report 19457215 (Version 2)
Quarter: 2021Q3

REPORT INFORMATION
  Report Type: Spontaneous
  Country: CA (occurrence: CA)
  Receive Date: 20210624
  Receipt Date: 20210716
  Transmission Date: 20211014
  Serious: Yes (Hospitalization, Other)
  Sender: FDA-Public Use
  Company Number: CA-HLS-202107691

PATIENT
  Age: 40 Year
  Sex: Male

DRUGS (95)
  1. CITALOPRAM HYDROBROMIDE. [Suspect]
     Active Substance: CITALOPRAM HYDROBROMIDE
     Indication: DEPRESSION
     Dosage: 250.0 MILLIGRAM
     Route: 065
  2. GABAPENTIN. [Suspect]
     Active Substance: GABAPENTIN
     Indication: SCHIZOPHRENIA
     Dosage: 600.0 MILLIGRAM
     Route: 065
  3. OLANZAPINE. [Suspect]
     Active Substance: OLANZAPINE
     Indication: SCHIZOPHRENIA
     Dosage: 20.0 MILLIGRAM
     Route: 065
  4. OLANZAPINE. [Suspect]
     Active Substance: OLANZAPINE
     Indication: SCHIZOPHRENIA
     Dosage: 40.0 MILLIGRAM 1 EVERY 1 DAYS
     Route: 065
  5. OLANZAPINE. [Suspect]
     Active Substance: OLANZAPINE
     Indication: PSYCHOTIC DISORDER
     Dosage: 40.0 MILLIGRAM 1 EVERY 1 DAYS
     Route: 065
  6. QUETIAPINE FUMARATE. [Suspect]
     Active Substance: QUETIAPINE FUMARATE
     Indication: SCHIZOPHRENIA
     Dosage: 600.0 MILLIGRAM
     Route: 048
  7. QUETIAPINE FUMARATE. [Suspect]
     Active Substance: QUETIAPINE FUMARATE
     Indication: PRODUCT USED FOR UNKNOWN INDICATION
     Route: 048
  8. RISPERIDONE. [Suspect]
     Active Substance: RISPERIDONE
     Indication: SCHIZOPHRENIA
     Dosage: 3.0 MILLIGRAM
     Route: 065
  9. RISPERIDONE. [Suspect]
     Active Substance: RISPERIDONE
     Indication: SCHIZOPHRENIA
     Dosage: 4.0 MILLIGRAM
     Route: 065
  10. PERPHENAZINE. [Suspect]
     Active Substance: PERPHENAZINE
     Indication: SCHIZOPHRENIA
     Route: 065
  11. AMISULPRIDE [Suspect]
     Active Substance: AMISULPRIDE
     Indication: SCHIZOPHRENIA
     Dosage: 30.0 MILLIGRAM
     Route: 065
  12. CITALOPRAM HYDROBROMIDE. [Suspect]
     Active Substance: CITALOPRAM HYDROBROMIDE
     Indication: SCHIZOPHRENIA
     Dosage: 80.0 MILLIGRAM 1 EVERY 1 DAYS
     Route: 065
  13. LITHIUM CARBONATE. [Suspect]
     Active Substance: LITHIUM CARBONATE
     Indication: SCHIZOPHRENIA
     Dosage: 1050.0 MILLIGRAM
     Route: 065
  14. LITHIUM CARBONATE. [Suspect]
     Active Substance: LITHIUM CARBONATE
     Indication: AFFECTIVE DISORDER
     Dosage: 1800.0 MILLIGRAM
     Route: 065
  15. LITHIUM CARBONATE. [Suspect]
     Active Substance: LITHIUM CARBONATE
     Indication: AFFECTIVE DISORDER
     Dosage: 2400.0 MILLIGRAM, 1 EVERY 1 DAYS
     Route: 065
  16. LOXAPINE SUCCINATE. [Suspect]
     Active Substance: LOXAPINE SUCCINATE
     Indication: PSYCHOTIC DISORDER
     Dosage: 200.0 MILLIGRAM
     Route: 065
  17. LOXAPINE SUCCINATE. [Suspect]
     Active Substance: LOXAPINE SUCCINATE
     Indication: SCHIZOPHRENIA
     Dosage: 75.0 MILLIGRAM
     Route: 065
  18. LOXAPINE. [Concomitant]
     Active Substance: LOXAPINE
     Dosage: UNKNOWN
     Route: 065
  19. PERPHENAZINE. [Suspect]
     Active Substance: PERPHENAZINE
     Indication: PSYCHOTIC DISORDER
     Dosage: 32.0 MILLIGRAM
     Route: 065
  20. QUETIAPINE FUMARATE. [Suspect]
     Active Substance: QUETIAPINE FUMARATE
     Indication: PSYCHOTIC DISORDER
     Dosage: 600.0 MILLIGRAM
     Route: 048
  21. QUETIAPINE FUMARATE. [Suspect]
     Active Substance: QUETIAPINE FUMARATE
     Indication: SCHIZOPHRENIA
     Route: 048
  22. CLOZAPINE. [Suspect]
     Active Substance: CLOZAPINE
     Indication: PSYCHOTIC DISORDER
     Dosage: 350.0 MILLIGRAM 1 EVERY 1 DAYS
     Route: 048
  23. AMISULPRIDE [Suspect]
     Active Substance: AMISULPRIDE
     Indication: PSYCHOTHERAPY
     Dosage: 30.0 MILLIGRAM
     Route: 065
  24. CITALOPRAM [Suspect]
     Active Substance: CITALOPRAM HYDROBROMIDE
     Indication: PRODUCT USED FOR UNKNOWN INDICATION
     Dosage: 80.0 MILLIGRAM
     Route: 065
  25. GABAPENTIN. [Suspect]
     Active Substance: GABAPENTIN
     Indication: SCHIZOPHRENIA
     Dosage: 1800.0 MILLIGRAM
     Route: 065
  26. HALOPERIDOL. [Suspect]
     Active Substance: HALOPERIDOL
     Dosage: 5.0 MILLIGRAM
     Route: 065
  27. LITHIUM. [Suspect]
     Active Substance: LITHIUM
     Indication: SCHIZOPHRENIA
     Dosage: 2400.0 MILLIGRAM, 1 EVERY 1 DAYS
     Route: 065
  28. LITHIUM CARBONATE. [Suspect]
     Active Substance: LITHIUM CARBONATE
     Indication: AFFECTIVE DISORDER
     Dosage: 1050.0 MILLIGRAM
     Route: 065
  29. OLANZAPINE. [Suspect]
     Active Substance: OLANZAPINE
     Indication: PSYCHOTIC DISORDER
     Dosage: 15.0 MILLIGRAM
     Route: 065
  30. RISPERIDONE. [Suspect]
     Active Substance: RISPERIDONE
     Indication: PSYCHOTIC DISORDER
     Dosage: 4.0 MILLIGRAM
     Route: 065
  31. SAPHRIS [Suspect]
     Active Substance: ASENAPINE MALEATE
     Indication: SCHIZOPHRENIA
     Dosage: 100.0 MILLIGRAM
     Route: 048
  32. XYLAC [Suspect]
     Active Substance: LOXAPINE SUCCINATE
     Indication: SCHIZOPHRENIA
     Dosage: 200.0 MILLIGRAM
     Route: 065
  33. ZIPRASIDONE. [Suspect]
     Active Substance: ZIPRASIDONE
     Dosage: 100.0 MILLIGRAM
     Route: 065
  34. ZIPRASIDONE MESILATE [Concomitant]
     Active Substance: ZIPRASIDONE MESYLATE
     Indication: PSYCHOTIC DISORDER
     Dosage: UNKNOWN
     Route: 065
  35. ABILIFY [Concomitant]
     Active Substance: ARIPIPRAZOLE
     Indication: PRODUCT USED FOR UNKNOWN INDICATION
     Dosage: UNKNOWN
     Route: 065
  36. ASENAPINE MALEATE [Suspect]
     Active Substance: ASENAPINE MALEATE
     Indication: SCHIZOPHRENIA
     Dosage: UNKNOWN
     Route: 065
  37. FLUOXETINE [Suspect]
     Active Substance: FLUOXETINE HYDROCHLORIDE
     Dosage: 80.0 MILLIGRAM 1 EVERY 1 DAYS
     Route: 065
  38. LOXAPINE SUCCINATE. [Suspect]
     Active Substance: LOXAPINE SUCCINATE
     Indication: SCHIZOPHRENIA
     Dosage: 50.0 MILLIGRAM
     Route: 065
  39. OLANZAPINE. [Suspect]
     Active Substance: OLANZAPINE
     Indication: PSYCHOTIC DISORDER
     Dosage: 20.0 MILLIGRAM
     Route: 065
  40. SAPHRIS [Suspect]
     Active Substance: ASENAPINE MALEATE
     Indication: PSYCHOTIC DISORDER
     Dosage: 100.0 MILLIGRAM
     Route: 048
  41. VALPROATE SODIUM. [Concomitant]
     Active Substance: VALPROATE SODIUM
     Indication: PRODUCT USED FOR UNKNOWN INDICATION
     Dosage: UNKNOWN
     Route: 065
  42. XYLAC [Suspect]
     Active Substance: LOXAPINE SUCCINATE
     Indication: SCHIZOPHRENIA
     Dosage: 75.0 MILLIGRAM
     Route: 065
  43. ZELDOX [Suspect]
     Active Substance: ZIPRASIDONE
     Indication: SCHIZOPHRENIA
     Dosage: 100.0 MILLIGRAM
     Route: 048
  44. ZIPRASIDONE HYDROCHLORIDE. [Suspect]
     Active Substance: ZIPRASIDONE HYDROCHLORIDE
     Indication: PSYCHOTIC DISORDER
     Dosage: 100.0 MILLIGRAM 1 EVERY 1 DAYS
     Route: 065
  45. ZIPRASIDONE MESILATE [Concomitant]
     Active Substance: ZIPRASIDONE MESYLATE
     Indication: SCHIZOPHRENIA
     Dosage: UNKNOWN
     Route: 065
  46. PERPHENAZINE. [Suspect]
     Active Substance: PERPHENAZINE
     Indication: PSYCHOTIC DISORDER
     Route: 065
  47. CLOZAPINE. [Suspect]
     Active Substance: CLOZAPINE
     Indication: SCHIZOPHRENIA
     Dosage: 350.0 MILLIGRAM 1 EVERY 1 DAYS
     Route: 048
  48. CITALOPRAM HYDROBROMIDE. [Suspect]
     Active Substance: CITALOPRAM HYDROBROMIDE
     Indication: SCHIZOPHRENIA
     Dosage: 250.0 MILLIGRAM
     Route: 065
  49. CLOMIPRAMINE [Suspect]
     Active Substance: CLOMIPRAMINE
     Dosage: 250.0 MILLIGRAM
     Route: 065
  50. GABAPENTIN. [Suspect]
     Active Substance: GABAPENTIN
     Indication: AFFECTIVE DISORDER
     Dosage: 1800.0 MILLIGRAM
     Route: 065
  51. GABAPENTIN. [Suspect]
     Active Substance: GABAPENTIN
     Indication: AFFECTIVE DISORDER
     Dosage: 600.0 MILLIGRAM
     Route: 065
  52. LITHIUM. [Suspect]
     Active Substance: LITHIUM
     Indication: SCHIZOPHRENIA
     Dosage: 1050.0 MILLIGRAM, 1 EVERY 1 DAYS
     Route: 065
  53. LITHIUM. [Suspect]
     Active Substance: LITHIUM
     Indication: SCHIZOPHRENIA
     Dosage: 1800.0 MILLIGRAM 1 EVERY 1 DAYS
     Route: 065
  54. LITHIUM CARBONATE. [Suspect]
     Active Substance: LITHIUM CARBONATE
     Indication: SCHIZOPHRENIA
     Dosage: 2400.0 MILLIGRAM, 1 EVERY 1 DAYS
     Route: 065
  55. LOXAPINE SUCCINATE. [Suspect]
     Active Substance: LOXAPINE SUCCINATE
     Indication: SCHIZOPHRENIA
     Dosage: 200.0 MILLIGRAM
     Route: 065
  56. QUETIAPINE FUMARATE. [Suspect]
     Active Substance: QUETIAPINE FUMARATE
     Indication: PSYCHOTIC DISORDER
     Dosage: 600.0 MILLIGRAM
     Route: 048
  57. RISPERIDONE. [Suspect]
     Active Substance: RISPERIDONE
     Indication: PSYCHOTIC DISORDER
     Dosage: 8.0 MILLIGRAM 1 EVERY 1 DAYS
     Route: 065
  58. THIORIDAZINE [Suspect]
     Active Substance: THIORIDAZINE
     Dosage: UNKNOWN
     Route: 048
  59. ZIPRASIDONE HYDROCHLORIDE. [Suspect]
     Active Substance: ZIPRASIDONE HYDROCHLORIDE
     Indication: SCHIZOPHRENIA
     Dosage: 50.0 MILLIGRAM 1 EVERY 1 DAYS????
     Route: 048
  60. TRIFLUOPERAZINE HYDROCHLORIDE. [Suspect]
     Active Substance: TRIFLUOPERAZINE HYDROCHLORIDE
     Indication: SCHIZOPHRENIA
     Route: 065
  61. CLOZAPINE. [Suspect]
     Active Substance: CLOZAPINE
     Indication: PSYCHOTIC DISORDER
     Route: 048
  62. CITALOPRAM [Suspect]
     Active Substance: CITALOPRAM HYDROBROMIDE
     Indication: SCHIZOPHRENIA
     Dosage: 250.0 MILLIGRAM
     Route: 065
  63. CITALOPRAM HYDROBROMIDE. [Suspect]
     Active Substance: CITALOPRAM HYDROBROMIDE
     Indication: DEPRESSION
     Dosage: 80.0 MILLIGRAM 1 EVERY 1 DAYS
     Route: 065
  64. LITHIUM CARBONATE. [Suspect]
     Active Substance: LITHIUM CARBONATE
     Indication: SCHIZOPHRENIA
     Dosage: 1800.0 MILLIGRAM
     Route: 065
  65. LOXAPINE SUCCINATE. [Suspect]
     Active Substance: LOXAPINE SUCCINATE
     Indication: PSYCHOTIC DISORDER
     Dosage: 50.0 MILLIGRAM
     Route: 065
  66. QUETIAPINE FUMARATE. [Suspect]
     Active Substance: QUETIAPINE FUMARATE
     Indication: SCHIZOPHRENIA
     Dosage: UNKNOWN
     Route: 065
  67. SAPHRIS [Suspect]
     Active Substance: ASENAPINE MALEATE
     Indication: PSYCHOTIC DISORDER
     Route: 048
  68. TRIFLUOPERAZINE [Suspect]
     Active Substance: TRIFLUOPERAZINE HYDROCHLORIDE
     Dosage: TRIFLUOPERAZINE
     Route: 065
  69. ZIPRASIDONE HYDROCHLORIDE. [Suspect]
     Active Substance: ZIPRASIDONE HYDROCHLORIDE
     Indication: PSYCHOTIC DISORDER
     Dosage: 50.0 MILLIGRAM 1 EVERY 1 DAYS????
     Route: 048
  70. ARIPIPRAZOLE. [Suspect]
     Active Substance: ARIPIPRAZOLE
     Indication: PSYCHOTHERAPY
     Dosage: 30.0 MILLIGRAM 1 EVERY 1 DAYS
     Route: 065
  71. CLOZAPINE. [Suspect]
     Active Substance: CLOZAPINE
     Indication: SCHIZOPHRENIA
     Route: 048
  72. AMISULPRIDE [Suspect]
     Active Substance: AMISULPRIDE
     Indication: PSYCHOTHERAPY
     Dosage: 1200.0 MILLIGRAM
     Route: 065
  73. CITALOPRAM [Suspect]
     Active Substance: CITALOPRAM HYDROBROMIDE
     Indication: SCHIZOPHRENIA
     Route: 065
  74. CITALOPRAM [Suspect]
     Active Substance: CITALOPRAM HYDROBROMIDE
     Indication: SCHIZOPHRENIA
     Dosage: 80.0 MILLIGRAM
     Route: 065
  75. FLUPENTIXOL [Suspect]
     Active Substance: FLUPENTIXOL
     Indication: SCHIZOPHRENIA
     Dosage: 60.0 MILLIGRAM,1 EVERY 1 DAYS
     Route: 065
  76. OLANZAPINE. [Suspect]
     Active Substance: OLANZAPINE
     Indication: SCHIZOPHRENIA
     Dosage: 15.0 MILLIGRAM
     Route: 065
  77. QUETIAPINE FUMARATE. [Suspect]
     Active Substance: QUETIAPINE FUMARATE
     Indication: SCHIZOPHRENIA
     Dosage: 600.0 MILLIGRAM
     Route: 048
  78. QUETIAPINE FUMARATE. [Suspect]
     Active Substance: QUETIAPINE FUMARATE
     Indication: PRODUCT USED FOR UNKNOWN INDICATION
     Dosage: 600.0 MILLIGRAM
     Route: 048
  79. QUETIAPINE FUMARATE. [Suspect]
     Active Substance: QUETIAPINE FUMARATE
     Indication: PSYCHOTIC DISORDER
     Dosage: UNKNOWN
     Route: 065
  80. QUETIAPINE FUMARATE. [Suspect]
     Active Substance: QUETIAPINE FUMARATE
     Indication: PSYCHOTIC DISORDER
     Route: 048
  81. RISPERIDONE. [Suspect]
     Active Substance: RISPERIDONE
     Indication: PSYCHOTIC DISORDER
     Dosage: 3.0 MILLIGRAM
     Route: 065
  82. RISPERIDONE. [Suspect]
     Active Substance: RISPERIDONE
     Indication: SCHIZOPHRENIA
     Dosage: 8.0 MILLIGRAM 1 EVERY 1 DAYS
     Route: 065
  83. SAPHRIS [Suspect]
     Active Substance: ASENAPINE MALEATE
     Indication: SCHIZOPHRENIA
     Route: 048
  84. ZIPRASIDONE HYDROCHLORIDE. [Suspect]
     Active Substance: ZIPRASIDONE HYDROCHLORIDE
     Indication: SCHIZOPHRENIA
     Dosage: 100.0 MILLIGRAM 1 EVERY 1 DAYS
     Route: 065
  85. ARIPIPRAZOLE. [Suspect]
     Active Substance: ARIPIPRAZOLE
     Indication: SCHIZOPHRENIA
     Dosage: 30.0 MILLIGRAM 1 EVERY 1 DAYS
     Route: 065
  86. AMISULPRIDE [Suspect]
     Active Substance: AMISULPRIDE
     Indication: SCHIZOPHRENIA
     Dosage: 1200.0 MILLIGRAM
     Route: 065
  87. CITALOPRAM [Suspect]
     Active Substance: CITALOPRAM HYDROBROMIDE
     Indication: PRODUCT USED FOR UNKNOWN INDICATION
     Route: 065
  88. CITALOPRAM [Suspect]
     Active Substance: CITALOPRAM HYDROBROMIDE
     Indication: PRODUCT USED FOR UNKNOWN INDICATION
     Dosage: 250.0 MILLIGRAM
     Route: 065
  89. FLUPENTIXOL [Suspect]
     Active Substance: FLUPENTIXOL
     Indication: PSYCHOTIC DISORDER
     Dosage: 60.0 MILLIGRAM,1 EVERY 1 DAYS
     Route: 065
  90. LOXAPINE SUCCINATE. [Suspect]
     Active Substance: LOXAPINE SUCCINATE
     Indication: PSYCHOTIC DISORDER
     Dosage: 75.0 MILLIGRAM
     Route: 065
  91. PERPHENAZINE. [Suspect]
     Active Substance: PERPHENAZINE
     Indication: SCHIZOPHRENIA
     Dosage: 32.0 MILLIGRAM
     Route: 065
  92. QUETIAPINE FUMARATE. [Suspect]
     Active Substance: QUETIAPINE FUMARATE
     Indication: PRODUCT USED FOR UNKNOWN INDICATION
     Dosage: 600.0 MILLIGRAM
     Route: 048
  93. QUETIAPINE FUMARATE. [Suspect]
     Active Substance: QUETIAPINE FUMARATE
     Indication: PRODUCT USED FOR UNKNOWN INDICATION
     Dosage: UNKNOWN
     Route: 065
  94. XYLAC [Suspect]
     Active Substance: LOXAPINE SUCCINATE
     Indication: SCHIZOPHRENIA
     Dosage: 50.0 MILLIGRAM
     Route: 065
  95. TRIFLUOPERAZINE [Concomitant]
     Active Substance: TRIFLUOPERAZINE HYDROCHLORIDE
     Indication: PRODUCT USED FOR UNKNOWN INDICATION
     Route: 065

REACTIONS (21)
  - Akathisia [Unknown]
  - Hypertension [Unknown]
  - Increased appetite [Unknown]
  - Irritability [Unknown]
  - Leukopenia [Unknown]
  - Euphoric mood [Unknown]
  - Prescribed overdose [Unknown]
  - Obsessive-compulsive disorder [Unknown]
  - Product use in unapproved indication [Unknown]
  - Therapeutic product effect incomplete [Unknown]
  - Therapeutic product effect variable [Unknown]
  - Toxicity to various agents [Unknown]
  - Antipsychotic drug level below therapeutic [Unknown]
  - Disinhibition [Unknown]
  - Drug ineffective [Unknown]
  - Off label use [Unknown]
  - Schizoaffective disorder [Unknown]
  - Weight increased [Unknown]
  - Dyslipidaemia [Unknown]
  - Obesity [Unknown]
  - Suicide attempt [Unknown]
